FAERS Safety Report 18169817 (Version 1)
Quarter: 2020Q3

REPORT INFORMATION
  Report Type: Spontaneous
  Country: CA (occurrence: CA)
  Receive Date: 20200819
  Receipt Date: 20200819
  Transmission Date: 20201103
  Serious: Yes (Life-Threatening, Hospitalization)
  Sender: FDA-Public Use
  Company Number: CA-ACCORD-195824

PATIENT
  Age: 2 Year
  Sex: Female
  Weight: 13 kg

DRUGS (8)
  1. DOXORUBICIN [Suspect]
     Active Substance: DOXORUBICIN
     Indication: HEPATOBLASTOMA
     Dosage: FREQUENCY: 1 EVERY 1 DAYS
     Route: 042
  2. SULFAMETHOXAZOLE/TRIMETHOPRIM [Concomitant]
     Active Substance: SULFAMETHOXAZOLE\TRIMETHOPRIM
  3. SODIUM THIOSULFATE [Concomitant]
     Active Substance: SODIUM THIOSULFATE
     Dosage: SODIUM THIOSULFATE INJECTION USP 25%
  4. ONDANSETRON [Concomitant]
     Active Substance: ONDANSETRON
  5. MACROGOL [Concomitant]
     Active Substance: POLYETHYLENE GLYCOLS
  6. CISPLATIN. [Suspect]
     Active Substance: CISPLATIN
     Indication: HEPATOBLASTOMA
     Dosage: CISPLATIN INJECTION, FREQUENCY: 1 EVERY 1 DAYS
     Route: 042
  7. DEXAMETHASONE. [Concomitant]
     Active Substance: DEXAMETHASONE
     Dosage: DOSAGE FORM: LIQUID INTRA? ARTICULAR
  8. DOMPERIDONE [Concomitant]
     Active Substance: DOMPERIDONE

REACTIONS (6)
  - Diarrhoea [Unknown]
  - Neutropenia [Unknown]
  - Influenza B virus test positive [Unknown]
  - Off label use [Unknown]
  - Pyrexia [Unknown]
  - Clostridium test positive [Unknown]
